FAERS Safety Report 6464611-4 (Version None)
Quarter: 2009Q4

REPORT INFORMATION
  Report Type: 
  Country: None (occurrence: None)
  Receive Date: 20091201
  Receipt Date: 20091120
  Transmission Date: 20100525
  Serious: Yes (Death, Hospitalization, Other)
  Sender: FDA-Public Use
  Company Number: GB-MERCK-0805GBR00034

PATIENT
  Age: 68 Year
  Sex: Female

DRUGS (6)
  1. FOSAMAX [Suspect]
     Route: 048
  2. LEVOTHYROXINE SODIUM [Concomitant]
     Indication: THYROID DISORDER
     Route: 065
     Dates: start: 19940101
  3. TIOTROPIUM BROMIDE [Concomitant]
  4. CHLORHEXIDINE ACETATE [Concomitant]
     Route: 065
  5. CALCIUM CARBONATE [Concomitant]
     Route: 065
  6. METOCLOPRAMIDE [Concomitant]
     Route: 065

REACTIONS (13)
  - ABSCESS [None]
  - ANXIETY [None]
  - DEATH [None]
  - FEELING COLD [None]
  - HYPERTENSION [None]
  - JAW FRACTURE [None]
  - OSTEOMYELITIS [None]
  - OSTEONECROSIS [None]
  - PATHOLOGICAL FRACTURE [None]
  - POST PROCEDURAL FISTULA [None]
  - SEPSIS [None]
  - TACHYCARDIA [None]
  - WEIGHT DECREASED [None]
